FAERS Safety Report 8246978-X (Version None)
Quarter: 2012Q1

REPORT INFORMATION
  Report Type: 
  Country: None (occurrence: None)
  Receive Date: 20120330
  Receipt Date: 20120315
  Transmission Date: 20120608
  Serious: Yes (Hospitalization)
  Sender: FDA-Public Use
  Company Number: NL-ROCHE-1040867

PATIENT
  Age: 51 Year
  Sex: Female
  Weight: 80 kg

DRUGS (6)
  1. LIDOCAINE [Concomitant]
     Dates: start: 20120209
  2. CLEMASTINE FUMARATE [Concomitant]
     Dates: start: 20120209
  3. ACETAMINOPHEN [Concomitant]
     Dosage: INTERMITTEND/ MG
     Dates: start: 20120105
  4. TEMAZEPAM [Concomitant]
     Dates: start: 20120115
  5. VEMURAFENIB [Suspect]
     Indication: METASTATIC MALIGNANT MELANOMA
     Route: 048
     Dates: start: 20111228, end: 20120210
  6. VEMURAFENIB [Suspect]
     Dosage: REDUCED
     Route: 048
     Dates: start: 20120305

REACTIONS (1)
  - HEPATOBILIARY DISEASE [None]
